FAERS Safety Report 9644760 (Version 1)
Quarter: 2013Q4

REPORT INFORMATION
  Report Type: Spontaneous
  Country: US (occurrence: None)
  Receive Date: 20131023
  Receipt Date: 20131023
  Transmission Date: 20140711
  Serious: Yes (Other)
  Sender: FDA-Public Use
  Company Number: None

PATIENT
  Age: 69 Year
  Sex: Female
  Weight: 63.5 kg

DRUGS (1)
  1. CARBAMAZEPINE ER [Suspect]
     Indication: TRIGEMINAL NEURALGIA
     Dosage: 200MG INCREASED TO 400 MG TWICE DAILY TAKEN BY MOUTH
     Route: 048
     Dates: start: 20130909, end: 20131021

REACTIONS (8)
  - Pain [None]
  - Disease recurrence [None]
  - Tremor [None]
  - Gait disturbance [None]
  - Memory impairment [None]
  - Oral mucosal blistering [None]
  - Dry eye [None]
  - Diplopia [None]
